FAERS Safety Report 4902204-8 (Version None)
Quarter: 2006Q1

REPORT INFORMATION
  Report Type: 
  Country: None (occurrence: None)
  Receive Date: 20060207
  Receipt Date: 20060124
  Transmission Date: 20060701
  Serious: Yes (Other)
  Sender: FDA-Public Use
  Company Number: DE-ROCHE-433574

PATIENT
  Age: 12 Year
  Sex: Female
  Weight: 57 kg

DRUGS (4)
  1. ROCEPHIN [Suspect]
     Indication: NEUROBORRELIOSIS
     Route: 042
     Dates: start: 20051001, end: 20051011
  2. PREDNISOLUT [Concomitant]
     Indication: PARESIS
     Route: 042
     Dates: start: 20050930, end: 20051005
  3. PREDNISOLONE [Concomitant]
     Indication: PARESIS
     Route: 048
     Dates: start: 20051006, end: 20051012
  4. CORNEREGEL [Concomitant]
     Indication: PARESIS
     Dates: start: 20050930, end: 20051012

REACTIONS (7)
  - BLOOD PRESSURE DECREASED [None]
  - CARDIOVASCULAR DISORDER [None]
  - CHILLS [None]
  - ERYTHEMA [None]
  - HYPERSENSITIVITY [None]
  - PYREXIA [None]
  - RASH [None]
